FAERS Safety Report 20760332 (Version 2)
Quarter: 2022Q3

REPORT INFORMATION
  Report Type: Report from Study
  Country: US (occurrence: US)
  Receive Date: 20220428
  Receipt Date: 20220705
  Transmission Date: 20221027
  Serious: Yes (Other)
  Sender: FDA-Public Use
  Company Number: US-ABBVIE-21K-163-4182405-00

PATIENT
  Sex: Female

DRUGS (7)
  1. HUMIRA [Suspect]
     Active Substance: ADALIMUMAB
     Indication: Hidradenitis
     Dosage: 2 PENS ON DAY 1
     Route: 058
     Dates: start: 20210923, end: 20210923
  2. HUMIRA [Suspect]
     Active Substance: ADALIMUMAB
     Dosage: 1 PEN ON DAY 15
     Route: 058
     Dates: start: 20211007, end: 20211007
  3. HUMIRA [Suspect]
     Active Substance: ADALIMUMAB
     Indication: Hidradenitis
     Route: 058
     Dates: start: 20211021, end: 202201
  4. HUMIRA [Suspect]
     Active Substance: ADALIMUMAB
     Route: 058
     Dates: start: 2022
  5. HUMIRA [Suspect]
     Active Substance: ADALIMUMAB
     Dosage: CF
     Route: 058
  6. PFIZER-BIONTECH COVID-19 VACCINE [Concomitant]
     Active Substance: TOZINAMERAN
     Indication: COVID-19 immunisation
     Route: 030
  7. PFIZER-BIONTECH COVID-19 VACCINE [Concomitant]
     Active Substance: TOZINAMERAN
     Dosage: BOOSTER VACCINE
     Route: 030

REACTIONS (11)
  - Unevaluable event [Recovered/Resolved]
  - Self-consciousness [Recovering/Resolving]
  - Loss of personal independence in daily activities [Recovering/Resolving]
  - Unevaluable event [Recovering/Resolving]
  - Hidradenitis [Recovering/Resolving]
  - COVID-19 [Unknown]
  - Protein total increased [Not Recovered/Not Resolved]
  - Fatigue [Unknown]
  - Unevaluable event [Unknown]
  - Nausea [Unknown]
  - Alopecia [Unknown]

NARRATIVE: CASE EVENT DATE: 20210101
